FAERS Safety Report 14895279 (Version 1)
Quarter: 2018Q2

REPORT INFORMATION
  Report Type: Spontaneous
  Country: US (occurrence: US)
  Receive Date: 20180426
  Receipt Date: 20180426
  Transmission Date: 20180711
  Serious: Yes (Other)
  Sender: FDA-Public Use
  Company Number: None

PATIENT
  Age: 79 Year
  Sex: Male
  Weight: 93.44 kg

DRUGS (2)
  1. VALSARTAN 160 MG [Suspect]
     Active Substance: VALSARTAN
     Indication: HYPERTENSION
     Route: 048
  2. AETNA CALLUS REMOVER [Concomitant]
     Active Substance: SALICYLIC ACID

REACTIONS (2)
  - Drug dispensing error [None]
  - Expired product administered [None]

NARRATIVE: CASE EVENT DATE: 20180202
